FAERS Safety Report 5307567-X (Version None)
Quarter: 2007Q2

REPORT INFORMATION
  Report Type: 
  Country: None (occurrence: None)
  Receive Date: 20070425
  Receipt Date: 20070420
  Transmission Date: 20071010
  Serious: Yes (Hospitalization)
  Sender: FDA-Public Use
  Company Number: FRWYE508120APR07

PATIENT
  Age: 5 Year
  Sex: Female
  Weight: 16 kg

DRUGS (6)
  1. ADVIL [Suspect]
     Dosage: DOSE UNKNOWN/IF NECESSARY
     Route: 048
     Dates: start: 20070122, end: 20070125
  2. RHINOFLUIMUCIL [Concomitant]
     Route: 045
     Dates: start: 20070122, end: 20070125
  3. RHINOFLUIMUCIL [Concomitant]
     Dosage: UNKNOWN
     Dates: start: 20070226
  4. COQUELUSEDAL [Concomitant]
     Dosage: 1 SUPPOS IF NECESSARY
     Route: 054
     Dates: start: 20070122, end: 20070125
  5. PNEUMOREL [Concomitant]
     Indication: COUGH
     Route: 048
     Dates: start: 20070122, end: 20070125
  6. EFFERALGAN PEDIATRIQUE [Concomitant]
     Indication: PYREXIA
     Dosage: DOSE UNKNOWN/IF NECESSARY
     Route: 048
     Dates: start: 20070122, end: 20070125

REACTIONS (6)
  - BRONCHOPNEUMOPATHY [None]
  - DRUG INEFFECTIVE [None]
  - HYPOVENTILATION [None]
  - PLEURAL EFFUSION [None]
  - PLEURAL FIBROSIS [None]
  - PNEUMONIA [None]
